FAERS Safety Report 21811134 (Version 1)
Quarter: 2023Q1

REPORT INFORMATION
  Report Type: Spontaneous
  Country: US (occurrence: US)
  Receive Date: 20230103
  Receipt Date: 20230103
  Transmission Date: 20230417
  Serious: Yes (Other)
  Sender: FDA-Public Use
  Company Number: US-BoehringerIngelheim-2023-BI-210663

PATIENT
  Age: 66 Year
  Sex: Female
  Weight: 50.8 kg

DRUGS (5)
  1. OFEV [Suspect]
     Active Substance: NINTEDANIB
     Indication: Product used for unknown indication
  2. INFLUENZA VIRUS VACCINE [Suspect]
     Active Substance: INFLUENZA VIRUS VACCINE
     Indication: Product used for unknown indication
  3. TYVASO [Suspect]
     Active Substance: TREPROSTINIL
     Indication: Product used for unknown indication
  4. SILDEN CITRATE (SILDENAFIL CITRATE) [Concomitant]
  5. MACITENTAN (opsumit) [Concomitant]

REACTIONS (8)
  - Diarrhoea [Unknown]
  - Pneumonia [Unknown]
  - Pyrexia [Unknown]
  - Feeding disorder [Unknown]
  - Nausea [Unknown]
  - Asthenia [Unknown]
  - Abdominal discomfort [Unknown]
  - Vomiting [Unknown]

NARRATIVE: CASE EVENT DATE: 20220101
